FAERS Safety Report 10789809 (Version 1)
Quarter: 2015Q1

REPORT INFORMATION
  Report Type: Report from Study
  Country: IT (occurrence: IT)
  Receive Date: 20150212
  Receipt Date: 20150212
  Transmission Date: 20150721
  Serious: Yes (Other)
  Sender: FDA-Public Use
  Company Number: IT-ABBVIE-15P-083-1335511-00

PATIENT
  Age: 68 Year
  Sex: Male
  Weight: 73 kg

DRUGS (1)
  1. DUODOPA [Suspect]
     Active Substance: CARBIDOPA\LEVODOPA
     Indication: PARKINSON^S DISEASE
     Dosage: MD 8 (+3) ML, CR 2.4 ML/H, ED 1.5 ML
     Route: 050
     Dates: start: 20141028

REACTIONS (1)
  - Granuloma [Unknown]

NARRATIVE: CASE EVENT DATE: 201411
